FAERS Safety Report 6676049 (Version 12)
Quarter: 2013Q1

REPORT INFORMATION
  Report Type: Spontaneous
  Country: US (occurrence: US)
  Receive Date: 20080624
  Receipt Date: 20130102
  Transmission Date: 20140127
  Serious: Yes (Life-Threatening, Hospitalization, Congenital Anomaly, Other)
  Sender: FDA-Public Use
  Company Number: US-PFIZER INC-2008049895

PATIENT
  Sex: Female
  Weight: 2.14 kg

DRUGS (4)
  1. ZOLOFT [Suspect]
     Indication: ANXIETY
     Dosage: UNK
     Route: 064
     Dates: start: 1993, end: 2002
  2. ZOLOFT [Suspect]
     Indication: DEPRESSION
  3. PRENATAL VITAMINS [Concomitant]
     Dosage: NA EVERY NA DAYS
  4. TYLENOL [Concomitant]
     Dosage: AS NEEDED

REACTIONS (10)
  - Foetal exposure during pregnancy [Unknown]
  - Heart disease congenital [Unknown]
  - Congenital anomaly [Unknown]
  - Anal atresia [Unknown]
  - Female genital tract fistula [Unknown]
  - Intestinal atresia [Unknown]
  - Constipation [Unknown]
  - Crying [Unknown]
  - Flatulence [Unknown]
  - Failure to thrive [Unknown]
